FAERS Safety Report 6141854-0 (Version None)
Quarter: 2009Q2

REPORT INFORMATION
  Report Type: 
  Country: None (occurrence: None)
  Receive Date: 20090401
  Receipt Date: 20090401
  Transmission Date: 20091009
  Serious: Yes (Hospitalization)
  Sender: FDA-Public Use
  Company Number: None

PATIENT
  Sex: Male
  Weight: 25.8 kg

DRUGS (1)
  1. CAMPATH [Suspect]
     Indication: INTESTINAL TRANSPLANT
     Dosage: 0.4 MG/KG OVER 3 HOURS IV
     Route: 042
     Dates: start: 20081105

REACTIONS (1)
  - EPSTEIN-BARR VIRUS ASSOCIATED LYMPHOPROLIFERATIVE DISORDER [None]
